FAERS Safety Report 24290936 (Version 1)
Quarter: 2024Q3

REPORT INFORMATION
  Report Type: Spontaneous
  Country: US (occurrence: None)
  Receive Date: 20240905
  Receipt Date: 20240905
  Transmission Date: 20241016
  Serious: Yes (Other)
  Sender: Public
  Company Number: None

PATIENT
  Age: 29 Year
  Sex: Female
  Weight: 66 kg

DRUGS (11)
  1. LEVOTHYROXINE [Suspect]
     Active Substance: LEVOTHYROXINE\LEVOTHYROXINE SODIUM
     Indication: Hypothyroidism
  2. AMBIEN [Concomitant]
     Active Substance: ZOLPIDEM TARTRATE
  3. BUSPAR [Concomitant]
     Active Substance: BUSPIRONE HYDROCHLORIDE
  4. BENZACLIN [Concomitant]
     Active Substance: BENZOYL PEROXIDE\CLINDAMYCIN PHOSPHATE
  5. DOXYCYCLINE [Concomitant]
     Active Substance: DOXYCYCLINE\DOXYCYCLINE HYCLATE
  6. PROZAC [Concomitant]
     Active Substance: FLUOXETINE HYDROCHLORIDE
  7. LITHOBID [Concomitant]
     Active Substance: LITHIUM CARBONATE
  8. NAPROXEN [Concomitant]
     Active Substance: NAPROXEN
  9. ZOFRAN [Concomitant]
     Active Substance: ONDANSETRON HYDROCHLORIDE
  10. IMITREX [Concomitant]
     Active Substance: SUMATRIPTAN SUCCINATE
  11. RETIN-A [Concomitant]
     Active Substance: TRETINOIN

REACTIONS (3)
  - Abdominal pain [None]
  - Mobility decreased [None]
  - Dyspnoea [None]
